FAERS Safety Report 4882033-4 (Version None)
Quarter: 2006Q1

REPORT INFORMATION
  Report Type: 
  Country: None (occurrence: None)
  Receive Date: 20060112
  Receipt Date: 20060103
  Transmission Date: 20060701
  Serious: Yes (Other)
  Sender: FDA-Public Use
  Company Number: 2006003947

PATIENT
  Age: 51 Year
  Sex: Female

DRUGS (2)
  1. DEPO-PROVERA [Suspect]
     Indication: CONTRACEPTION
     Dosage: 150 MG (150 MG, IST INJECTION, EVERY 3 MONTHS), INTRAMUSCULAR
     Route: 030
     Dates: start: 19990101, end: 19990101
  2. DEPO-PROVERA [Suspect]
     Indication: MENSTRUAL DISORDER
     Dosage: 150 MG (150 MG, IST INJECTION, EVERY 3 MONTHS), INTRAMUSCULAR
     Route: 030
     Dates: start: 19990101, end: 19990101

REACTIONS (1)
  - DIABETES MELLITUS [None]
